FAERS Safety Report 13545106 (Version 1)
Quarter: 2017Q2

REPORT INFORMATION
  Report Type: Spontaneous
  Country: US (occurrence: US)
  Receive Date: 20170513
  Receipt Date: 20170513
  Transmission Date: 20170830
  Serious: Yes (Other)
  Sender: FDA-Public Use
  Company Number: None

PATIENT
  Age: 56 Year
  Sex: Female
  Weight: 104.42 kg

DRUGS (9)
  1. NOVOLOG [Suspect]
     Active Substance: INSULIN ASPART
  2. METOPROLO [Concomitant]
     Active Substance: METOPROLOL
  3. SERTRALINE [Concomitant]
     Active Substance: SERTRALINE HYDROCHLORIDE
  4. CLARITIN [Concomitant]
     Active Substance: LORATADINE
  5. ZOLPIDEM [Concomitant]
     Active Substance: ZOLPIDEM\ZOLPIDEM TARTRATE
  6. PANTOPRAZOLE [Concomitant]
     Active Substance: PANTOPRAZOLE
  7. METFORMIN [Concomitant]
     Active Substance: METFORMIN HYDROCHLORIDE
  8. LEVEMIR [Concomitant]
     Active Substance: INSULIN DETEMIR
  9. AVORVASTATIN CALCIUM [Concomitant]

REACTIONS (2)
  - Blood glucose increased [None]
  - Device issue [None]

NARRATIVE: CASE EVENT DATE: 20170513
